FAERS Safety Report 11232076 (Version 2)
Quarter: 2015Q3

REPORT INFORMATION
  Report Type: Spontaneous
  Country: US (occurrence: US)
  Receive Date: 20150701
  Receipt Date: 20150708
  Transmission Date: 20151125
  Serious: Yes (Hospitalization)
  Sender: FDA-Public Use
  Company Number: US-BAXTER-2015BAX033360

PATIENT
  Sex: Male

DRUGS (4)
  1. TIKOSYN [Suspect]
     Active Substance: DOFETILIDE
     Indication: CARDIAC DISORDER
     Route: 065
     Dates: start: 20150504
  2. FLUCONAZOLE INJECTION, USP [Suspect]
     Active Substance: FLUCONAZOLE
     Indication: BLOOD GLUCOSE ABNORMAL
  3. FLUCONAZOLE INJECTION, USP [Suspect]
     Active Substance: FLUCONAZOLE
     Indication: BLOOD CHOLESTEROL ABNORMAL
  4. FLUCONAZOLE INJECTION, USP [Suspect]
     Active Substance: FLUCONAZOLE
     Indication: PROSTATIC DISORDER
     Route: 065
     Dates: start: 20150508, end: 20150522

REACTIONS (3)
  - Influenza like illness [Not Recovered/Not Resolved]
  - Drug interaction [Unknown]
  - Influenza [Not Recovered/Not Resolved]
